FAERS Safety Report 10196064 (Version 1)
Quarter: 2014Q2

REPORT INFORMATION
  Report Type: Spontaneous
  Country: US (occurrence: None)
  Receive Date: 20140523
  Receipt Date: 20140523
  Transmission Date: 20141212
  Serious: Yes (Hospitalization)
  Sender: FDA-Public Use
  Company Number: None

PATIENT
  Age: 51 Year
  Sex: Male

DRUGS (9)
  1. TACROLIMUS [Suspect]
     Indication: IMMUNOSUPPRESSION
     Route: 048
     Dates: start: 20140407, end: 20140407
  2. ASCORBIC ACID [Concomitant]
  3. CETIRIZINE [Concomitant]
  4. FERROUS SULFATE [Concomitant]
  5. GUAIFENESIN-CODEINE [Concomitant]
  6. LANSOPRAZOLE [Concomitant]
  7. LEVOTHYROXINE [Concomitant]
  8. OXYCODONE [Concomitant]
  9. PREDNISONE [Concomitant]

REACTIONS (3)
  - Renal failure acute [None]
  - Hyperkalaemia [None]
  - Dehydration [None]
